FAERS Safety Report 7431997-3 (Version None)
Quarter: 2011Q2

REPORT INFORMATION
  Report Type: 
  Country: None (occurrence: None)
  Receive Date: 20110422
  Receipt Date: 20110404
  Transmission Date: 20111010
  Serious: No
  Sender: FDA-Public Use
  Company Number: US-B.I. PHARMACEUTICALS,INC./RIDGEFIELD-2011-BP-09960BP

PATIENT
  Sex: Male

DRUGS (6)
  1. FUROSEMIDE [Concomitant]
     Indication: PERICARDIAL EFFUSION
     Route: 048
  2. OMEPRAZOLE [Concomitant]
     Indication: GASTROOESOPHAGEAL REFLUX DISEASE
     Dosage: 40 MG
     Route: 048
  3. ALLOPURINOL [Concomitant]
     Indication: GOUT
     Dosage: 100 MG
     Route: 048
  4. PRADAXA [Suspect]
     Indication: ATRIAL FIBRILLATION
     Dosage: 300 MG
     Route: 048
     Dates: start: 20101201
  5. DIOVAN [Concomitant]
     Indication: HYPERTENSION
     Dosage: 120 MG
     Route: 048
  6. KLOR-CON [Concomitant]
     Indication: PROPHYLAXIS
     Dosage: 20 MEQ
     Route: 048

REACTIONS (6)
  - CHEST PAIN [None]
  - HEADACHE [None]
  - DIZZINESS [None]
  - CHEST DISCOMFORT [None]
  - ABDOMINAL PAIN UPPER [None]
  - ASTHENIA [None]
